FAERS Safety Report 7417481-1 (Version None)
Quarter: 2011Q2

REPORT INFORMATION
  Report Type: 
  Country: None (occurrence: None)
  Receive Date: 20110415
  Receipt Date: 20110412
  Transmission Date: 20111010
  Serious: Yes (Death, Other)
  Sender: FDA-Public Use
  Company Number: TW-PFIZER INC-2011080655

PATIENT
  Age: 80 Year
  Sex: Male

DRUGS (3)
  1. TAZOCIN [Suspect]
     Dosage: 2.25 G, 3X/DAY
     Route: 042
     Dates: start: 20110324, end: 20110327
  2. ALLOPURINOL [Concomitant]
     Dosage: UNK
     Dates: start: 20110321, end: 20110324
  3. COLCHICINE [Concomitant]
     Indication: GOUT
     Dosage: UNK
     Dates: start: 20110319, end: 20110321

REACTIONS (2)
  - DEATH [None]
  - DRUG ERUPTION [None]
